FAERS Safety Report 10259330 (Version 1)
Quarter: 2014Q2

REPORT INFORMATION
  Report Type: Spontaneous
  Country: US (occurrence: US)
  Receive Date: 20140625
  Receipt Date: 20140625
  Transmission Date: 20141212
  Serious: No
  Sender: FDA-Public Use
  Company Number: US-ASTELLAS-2014US001977

PATIENT
  Sex: Female

DRUGS (8)
  1. VESICARE [Suspect]
     Indication: PRODUCT USED FOR UNKNOWN INDICATION
     Route: 048
  2. VESICARE [Suspect]
     Route: 048
  3. LEVOTHYROXINE [Concomitant]
     Indication: HYPOTHYROIDISM
     Route: 048
  4. OMEPRAZOLE [Concomitant]
     Indication: GASTROOESOPHAGEAL REFLUX DISEASE
     Route: 048
  5. SERTRALINE HCL [Concomitant]
     Indication: DEPRESSION
     Route: 048
  6. TOVIAZ [Concomitant]
     Indication: HYPERTONIC BLADDER
     Route: 048
  7. CRESTOR [Concomitant]
     Indication: BLOOD CHOLESTEROL INCREASED
     Route: 048
  8. CLONAZEPAM [Concomitant]
     Indication: PANIC ATTACK
     Route: 048

REACTIONS (1)
  - Drug ineffective [Unknown]
